FAERS Safety Report 9050318 (Version 2)
Quarter: 2013Q2

REPORT INFORMATION
  Report Type: Spontaneous
  Country: BR (occurrence: BR)
  Receive Date: 20130205
  Receipt Date: 20130415
  Transmission Date: 20140414
  Serious: Yes (Other)
  Sender: FDA-Public Use
  Company Number: PHHY2013BR010745

PATIENT
  Sex: Female
  Weight: 53 kg

DRUGS (8)
  1. ACLASTA [Suspect]
     Indication: OSTEOPOROSIS
     Dosage: 5 MG, ANNUAL
     Route: 042
     Dates: start: 201212
  2. ACLASTA [Suspect]
     Indication: SPINAL PAIN
  3. GLIFAGE [Concomitant]
     Dosage: UNK UKN, UNK
  4. METFORMIN [Concomitant]
     Indication: DIABETES MELLITUS
     Dosage: 2 DF, DAILY
     Route: 048
  5. AMITRIPTILINA [Concomitant]
     Indication: HERPES VIRUS INFECTION
     Dosage: UNK UKN, DAILY
     Route: 048
  6. CALCIUM D                          /00944201/ [Concomitant]
     Dosage: 1 DF, DAILY
     Route: 048
  7. HEIMER [Concomitant]
     Indication: DEMENTIA ALZHEIMER^S TYPE
     Dosage: 1 DF, DAILY
     Route: 048
  8. GLUCOSAMIN SULFATE [Concomitant]
     Dosage: 1 DF, DAILY
     Route: 048

REACTIONS (2)
  - Foot fracture [Recovering/Resolving]
  - Spinal pain [Recovering/Resolving]
